FAERS Safety Report 9932522 (Version 1)
Quarter: 2014Q1

REPORT INFORMATION
  Report Type: Spontaneous
  Country: US (occurrence: US)
  Receive Date: 20140228
  Receipt Date: 20140228
  Transmission Date: 20141002
  Serious: No
  Sender: FDA-Public Use
  Company Number: US-GLAXOSMITHKLINE-A1019285A

PATIENT
  Age: 27 Year
  Sex: Female
  Weight: 90.9 kg

DRUGS (2)
  1. LAMICTAL [Suspect]
     Indication: EPILEPSY
     Dosage: 25MG TWICE PER DAY
     Route: 048
     Dates: start: 20130321, end: 20130408
  2. CARBAMAZEPINE [Concomitant]

REACTIONS (1)
  - Rash [Unknown]
